FAERS Safety Report 25976192 (Version 1)
Quarter: 2025Q4

REPORT INFORMATION
  Report Type: Spontaneous
  Country: CN (occurrence: CN)
  Receive Date: 20251029
  Receipt Date: 20251029
  Transmission Date: 20260117
  Serious: Yes (Hospitalization)
  Sender: OTSUKA
  Company Number: CN-MMM-Otsuka-0BV8HNK9

PATIENT
  Age: 63 Year
  Sex: Female

DRUGS (4)
  1. ARIPIPRAZOLE [Suspect]
     Active Substance: ARIPIPRAZOLE
     Indication: Psychiatric symptom
     Dosage: 7.5 MG, QD
     Dates: start: 20250508, end: 20250912
  2. ARIPIPRAZOLE [Suspect]
     Active Substance: ARIPIPRAZOLE
     Dosage: 5 MG, QD (EVERY NIGHT)
     Dates: start: 20250913, end: 20251021
  3. ZOPICLONE [Concomitant]
     Active Substance: ZOPICLONE
     Indication: Insomnia
     Dosage: 1.875 MG, QD
     Dates: start: 20240924, end: 20251021
  4. CLONAZEPAM [Concomitant]
     Active Substance: CLONAZEPAM
     Indication: Insomnia
     Dosage: 4 MG, QD
     Dates: start: 20241224, end: 20251021

REACTIONS (4)
  - Nervous system disorder [Recovering/Resolving]
  - Decreased activity [Recovering/Resolving]
  - Tremor [Recovering/Resolving]
  - Musculoskeletal stiffness [Recovering/Resolving]

NARRATIVE: CASE EVENT DATE: 20250906
